FAERS Safety Report 6391377-9 (Version None)
Quarter: 2009Q4

REPORT INFORMATION
  Report Type: 
  Country: None (occurrence: None)
  Receive Date: 20091005
  Receipt Date: 20090918
  Transmission Date: 20100525
  Serious: Yes (Hospitalization)
  Sender: FDA-Public Use
  Company Number: 2008-177914-NL

PATIENT
  Age: 30 Year
  Sex: Female
  Weight: 81.6 kg

DRUGS (2)
  1. NUVARING [Suspect]
     Indication: CONTRACEPTION
     Dosage: 1 DF; QM; VAG
     Route: 067
     Dates: start: 20030806, end: 20050701
  2. DEPO-PROVERA [Suspect]
     Indication: DRUG USE FOR UNKNOWN INDICATION
     Dates: start: 20001001, end: 20080101

REACTIONS (10)
  - BACK PAIN [None]
  - DEEP VEIN THROMBOSIS [None]
  - FIBROADENOMA OF BREAST [None]
  - GASTROOESOPHAGEAL REFLUX DISEASE [None]
  - HIDRADENITIS [None]
  - HYPOKALAEMIA [None]
  - PHARYNGITIS [None]
  - SCIATICA [None]
  - SINUSITIS [None]
  - URINARY TRACT INFECTION [None]
